FAERS Safety Report 8234928-1 (Version None)
Quarter: 2012Q1

REPORT INFORMATION
  Report Type: 
  Country: None (occurrence: None)
  Receive Date: 20120307
  Receipt Date: 20110117
  Transmission Date: 20120608
  Serious: Yes (Other)
  Sender: FDA-Public Use
  Company Number: PHHY2011US00787

PATIENT
  Age: 52 Year
  Sex: Female
  Weight: 116 kg

DRUGS (5)
  1. MIRALAX [Concomitant]
  2. AFINITOR [Suspect]
     Indication: INSULINOMA
     Dosage: 10MG DAILY, ORAL
     Route: 048
  3. SYNTHROID [Concomitant]
  4. OCTREOTIDE ACETATE [Concomitant]
  5. MULTI-VIT (VITAMINS NOS) [Concomitant]

REACTIONS (5)
  - PYREXIA [None]
  - TUMOUR NECROSIS [None]
  - INSULINOMA [None]
  - BLOOD GLUCOSE DECREASED [None]
  - ABSCESS [None]
